FAERS Safety Report 4920196-2 (Version None)
Quarter: 2006Q1

REPORT INFORMATION
  Report Type: 
  Country: None (occurrence: None)
  Receive Date: 20060113
  Receipt Date: 20050928
  Transmission Date: 20060701
  Serious: No
  Sender: FDA-Public Use
  Company Number: 2005SP003270

PATIENT
  Age: 60 Year
  Sex: Female
  Weight: 90.7194 kg

DRUGS (7)
  1. LUNESTA [Suspect]
     Indication: INSOMNIA
     Dosage: 3 MG;HS;ORAL
     Route: 048
     Dates: start: 20050922, end: 20050901
  2. LUNESTA [Suspect]
     Indication: POST-TRAUMATIC STRESS DISORDER
     Dosage: 3 MG;HS;ORAL
     Route: 048
     Dates: start: 20050922, end: 20050901
  3. LUNESTA [Suspect]
     Dosage: 6 MG;HS;ORAL
     Route: 048
     Dates: start: 20050901, end: 20051001
  4. CYPROHEPTADINE HCL [Concomitant]
  5. PROZAC [Concomitant]
  6. RIZATRIPTAN [Concomitant]
  7. HORMONES AND RELATED AGENTS [Concomitant]

REACTIONS (3)
  - DRY MOUTH [None]
  - DYSGEUSIA [None]
  - INSOMNIA [None]
